FAERS Safety Report 24045523 (Version 1)
Quarter: 2024Q3

REPORT INFORMATION
  Report Type: Spontaneous
  Country: US (occurrence: US)
  Receive Date: 20240703
  Receipt Date: 20240703
  Transmission Date: 20241017
  Serious: Yes (Hospitalization, Other)
  Sender: DR REDDYS
  Company Number: US-DRL-USA-LIT/USA/24/0009432

PATIENT
  Age: 34 Year
  Sex: Male

DRUGS (1)
  1. METHAMPHETAMINE [Suspect]
     Active Substance: METHAMPHETAMINE
     Indication: Product used for unknown indication

REACTIONS (7)
  - Intestinal ischaemia [Unknown]
  - Pneumatosis intestinalis [Unknown]
  - Clostridium bacteraemia [Unknown]
  - Anuria [Unknown]
  - Rhabdomyolysis [Unknown]
  - Pyrexia [Unknown]
  - Drug abuse [Unknown]
